FAERS Safety Report 16853393 (Version 3)
Quarter: 2020Q1

REPORT INFORMATION
  Report Type: Spontaneous
  Country: GB (occurrence: GB)
  Receive Date: 20190925
  Receipt Date: 20200131
  Transmission Date: 20200409
  Serious: Yes (Other)
  Sender: FDA-Public Use
  Company Number: GB-INCYTE CORPORATION-2019IN009448

PATIENT

DRUGS (1)
  1. JAKAVI [Suspect]
     Active Substance: RUXOLITINIB
     Indication: MYELOFIBROSIS
     Dosage: 20 MG, QD
     Route: 048
     Dates: start: 20180110, end: 20190710

REACTIONS (3)
  - Skin cancer metastatic [Not Recovered/Not Resolved]
  - Recurrent cancer [Recovered/Resolved]
  - Metastases to lung [Not Recovered/Not Resolved]
